FAERS Safety Report 13702869 (Version 1)
Quarter: 2017Q2

REPORT INFORMATION
  Report Type: Spontaneous
  Country: FR (occurrence: FR)
  Receive Date: 20170629
  Receipt Date: 20170629
  Transmission Date: 20170830
  Serious: Yes (Other)
  Sender: FDA-Public Use
  Company Number: FR-JNJFOC-20170617039

PATIENT
  Age: 33 Year
  Sex: Male
  Weight: 75 kg

DRUGS (2)
  1. RISPERDAL [Suspect]
     Active Substance: RISPERIDONE
     Indication: SCHIZOPHRENIA
     Route: 048
     Dates: start: 20170530, end: 20170606
  2. PALIPERIDONE. [Suspect]
     Active Substance: PALIPERIDONE
     Indication: SCHIZOPHRENIA
     Route: 030
     Dates: start: 20170530, end: 20170530

REACTIONS (7)
  - Overdose [Recovered/Resolved]
  - Muscle spasms [Recovered/Resolved]
  - Cogwheel rigidity [Recovered/Resolved]
  - Hepatic enzyme increased [Recovered/Resolved]
  - Dyskinesia [Recovered/Resolved]
  - Akathisia [Recovering/Resolving]
  - Blood creatine phosphokinase increased [Recovered/Resolved]

NARRATIVE: CASE EVENT DATE: 20170606
